FAERS Safety Report 19274483 (Version 1)
Quarter: 2021Q2

REPORT INFORMATION
  Report Type: Spontaneous
  Country: HU (occurrence: HU)
  Receive Date: 20210519
  Receipt Date: 20210519
  Transmission Date: 20210717
  Serious: Yes (Death, Other)
  Sender: FDA-Public Use
  Company Number: NVSC2021HU099105

PATIENT
  Age: 77 Year
  Sex: Male

DRUGS (2)
  1. GLIVEC [Suspect]
     Active Substance: IMATINIB MESYLATE
     Indication: CHRONIC MYELOID LEUKAEMIA
     Dosage: 400 MG
     Route: 065
     Dates: start: 20110624, end: 2012
  2. GLIVEC [Suspect]
     Active Substance: IMATINIB MESYLATE
     Dosage: 600 MG
     Route: 065
     Dates: start: 2012, end: 2013

REACTIONS (12)
  - Philadelphia chromosome positive [Unknown]
  - Treatment failure [Unknown]
  - Extranodal marginal zone B-cell lymphoma (MALT type) [Unknown]
  - Chronic myeloid leukaemia recurrent [Unknown]
  - Periorbital oedema [Unknown]
  - Abdominal discomfort [Unknown]
  - Therapeutic response decreased [Unknown]
  - Second primary malignancy [Unknown]
  - Weight decreased [Unknown]
  - Metastases to bladder [Fatal]
  - Iron deficiency [Unknown]
  - Colon cancer recurrent [Fatal]

NARRATIVE: CASE EVENT DATE: 20111004
